FAERS Safety Report 6920936-7 (Version None)
Quarter: 2010Q3

REPORT INFORMATION
  Report Type: 
  Country: None (occurrence: None)
  Receive Date: 20100812
  Receipt Date: 20100802
  Transmission Date: 20110219
  Serious: Yes (Other)
  Sender: FDA-Public Use
  Company Number: JP-PFIZER INC-2010096317

PATIENT
  Age: 12 Year
  Sex: Male

DRUGS (1)
  1. VFEND [Suspect]
     Route: 042

REACTIONS (1)
  - HUMAN HERPESVIRUS 6 INFECTION [None]
